FAERS Safety Report 24789756 (Version 1)
Quarter: 2024Q4

REPORT INFORMATION
  Report Type: Spontaneous
  Country: US (occurrence: None)
  Receive Date: 20241229
  Receipt Date: 20241229
  Transmission Date: 20250115
  Serious: No
  Sender: Public
  Company Number: None

PATIENT
  Age: 43 Year
  Sex: Male
  Weight: 128.7 kg

DRUGS (5)
  1. WEGOVY [Suspect]
     Active Substance: SEMAGLUTIDE
     Indication: Obesity
     Dates: start: 20240415
  2. OZEMPIC [Suspect]
     Active Substance: SEMAGLUTIDE
  3. SERTRALINE HYDROCHLORIDE [Concomitant]
     Active Substance: SERTRALINE HYDROCHLORIDE
  4. DEVICE [Concomitant]
     Active Substance: DEVICE
  5. PEPCID [Concomitant]
     Active Substance: FAMOTIDINE

REACTIONS (4)
  - Middle insomnia [None]
  - Feeling hot [None]
  - Hyperhidrosis [None]
  - Thirst [None]

NARRATIVE: CASE EVENT DATE: 20241228
